FAERS Safety Report 12331096 (Version 1)
Quarter: 2016Q2

REPORT INFORMATION
  Report Type: Spontaneous
  Country: US (occurrence: None)
  Receive Date: 20160503
  Receipt Date: 20160503
  Transmission Date: 20160815
  Serious: No
  Sender: FDA-Public Use
  Company Number: None

PATIENT
  Age: 71 Year
  Sex: Male
  Weight: 92.99 kg

DRUGS (11)
  1. PROPRANOLOL [Concomitant]
     Active Substance: PROPRANOLOL\PROPRANOLOL HYDROCHLORIDE
  2. AMLODIPINE [Concomitant]
     Active Substance: AMLODIPINE BESYLATE
  3. MULTI VIT [Concomitant]
  4. ALLOPURINOL. [Concomitant]
     Active Substance: ALLOPURINOL
  5. COZAAR [Concomitant]
     Active Substance: LOSARTAN POTASSIUM
  6. VITAMIN D [Concomitant]
     Active Substance: CHOLECALCIFEROL
  7. LOW DOSE ASPRIN [Concomitant]
     Active Substance: ASPIRIN
  8. METFORMIN [Concomitant]
     Active Substance: METFORMIN HYDROCHLORIDE
  9. CRESTOR [Concomitant]
     Active Substance: ROSUVASTATIN CALCIUM
  10. FENTANYL 75MCG PT 72 MALLINCKRODT [Suspect]
     Active Substance: FENTANYL
     Indication: PAIN
     Dosage: 75MCG 1 PATCH EVERY OTHER DAY ON SKIN
     Route: 061
     Dates: start: 20160307, end: 20160324
  11. DYAZIDE [Concomitant]
     Active Substance: HYDROCHLOROTHIAZIDE\TRIAMTERENE

REACTIONS (4)
  - Product substitution issue [None]
  - Pain [None]
  - Product adhesion issue [None]
  - Discomfort [None]

NARRATIVE: CASE EVENT DATE: 20160307
